FAERS Safety Report 8558533-2 (Version None)
Quarter: 2012Q3

REPORT INFORMATION
  Report Type: 
  Country: None (occurrence: None)
  Receive Date: 20120801
  Receipt Date: 20120223
  Transmission Date: 20120928
  Serious: Yes (Death, Hospitalization, Other)
  Sender: FDA-Public Use
  Company Number: DE-CELGENEUS-062-50794-12053033

PATIENT
  Age: 59 Year
  Sex: Female
  Weight: 51 kg

DRUGS (15)
  1. RED BLOOD CELLS [Concomitant]
     Indication: MYELODYSPLASTIC SYNDROME
     Route: 041
     Dates: start: 20110711
  2. VIDAZA [Suspect]
     Indication: MYELODYSPLASTIC SYNDROME
     Dosage: 75 MILLIGRAM/SQ. METER
     Route: 058
     Dates: start: 20110725, end: 20110822
  3. RED BLOOD CELLS [Concomitant]
     Route: 041
     Dates: start: 20111024
  4. ANTIBIOTICS [Concomitant]
     Route: 041
  5. RED BLOOD CELLS [Concomitant]
     Route: 041
     Dates: start: 20111129
  6. PLATELETS [Concomitant]
     Route: 041
     Dates: start: 20110929
  7. VIDAZA [Suspect]
     Dosage: 75 MILLIGRAM/SQ. METER
     Route: 058
     Dates: start: 20111017
  8. VIDAZA [Suspect]
     Dosage: 75 MILLIGRAM/SQ. METER
     Route: 058
     Dates: start: 20111114, end: 20111118
  9. RED BLOOD CELLS [Concomitant]
     Route: 041
     Dates: start: 20110914
  10. PLATELETS [Concomitant]
     Indication: MYELODYSPLASTIC SYNDROME
     Route: 041
     Dates: start: 20110711
  11. ANTIBIOTICS [Concomitant]
     Indication: ANTIBIOTIC PROPHYLAXIS
     Route: 041
  12. PLATELETS [Concomitant]
     Route: 041
     Dates: start: 20110801
  13. ANTIBIOTICS [Concomitant]
     Route: 048
  14. VIDAZA [Suspect]
     Dosage: 75 MILLIGRAM/SQ. METER
     Route: 058
     Dates: start: 20110912, end: 20111010
  15. RED BLOOD CELLS [Concomitant]
     Route: 041
     Dates: start: 20110728

REACTIONS (11)
  - HAEMOGLOBIN DECREASED [None]
  - NEUTROPENIC SEPSIS [None]
  - INJECTION SITE REACTION [None]
  - ERYSIPELAS [None]
  - PLATELET COUNT DECREASED [None]
  - NAUSEA [None]
  - SKIN REACTION [None]
  - NON-HODGKIN'S LYMPHOMA [None]
  - WHITE BLOOD CELL COUNT DECREASED [None]
  - VULVAL ULCERATION [None]
  - INFECTION [None]
